FAERS Safety Report 9653198 (Version 1)
Quarter: 2013Q4

REPORT INFORMATION
  Report Type: Spontaneous
  Country: GB (occurrence: GB)
  Receive Date: 20131029
  Receipt Date: 20131029
  Transmission Date: 20140711
  Serious: Yes (Hospitalization)
  Sender: FDA-Public Use
  Company Number: GB-PFIZER INC-2013307293

PATIENT
  Age: 81 Year
  Sex: Male

DRUGS (14)
  1. RAMIPRIL [Suspect]
     Dosage: UNK
     Route: 065
  2. TRIMETHOPRIM [Suspect]
     Indication: URINARY TRACT INFECTION BACTERIAL
     Dosage: 200 MG, 2X/DAY
     Route: 048
     Dates: start: 20130930, end: 20131005
  3. ALENDRONATE [Concomitant]
     Dosage: UNK
     Route: 065
  4. BUPRENORPHINE [Concomitant]
     Dosage: UNK
     Route: 065
  5. CARBOPLATIN [Concomitant]
     Dosage: UNK
     Route: 065
  6. DEXAMETHASONE [Concomitant]
     Dosage: UNK
     Route: 065
  7. ETOPOSIDE [Concomitant]
     Dosage: UNK
     Route: 065
  8. HYDROXYCHLOROQUINE [Concomitant]
     Dosage: UNK
     Route: 065
  9. METOCLOPRAMIDE [Concomitant]
     Dosage: UNK
     Route: 065
  10. OMEPRAZOLE [Concomitant]
     Dosage: UNK
     Route: 065
  11. PREDNISOLONE [Concomitant]
     Dosage: UNK
     Route: 065
  12. TIOTROPIUM [Concomitant]
     Dosage: UNK
     Route: 065
  13. VERAPAMIL [Concomitant]
     Dosage: UNK
     Route: 065
  14. ADCAL-D3 [Concomitant]
     Dosage: UNK
     Route: 065

REACTIONS (3)
  - Dyspnoea [Recovering/Resolving]
  - Productive cough [Recovering/Resolving]
  - Blood potassium increased [Recovering/Resolving]
